FAERS Safety Report 7319720-4 (Version None)
Quarter: 2011Q1

REPORT INFORMATION
  Report Type: 
  Country: None (occurrence: None)
  Receive Date: 20110228
  Receipt Date: 20101111
  Transmission Date: 20110831
  Serious: No
  Sender: FDA-Public Use
  Company Number: A0877045A

PATIENT
  Age: 53 Year
  Sex: Female

DRUGS (2)
  1. BETASERON [Concomitant]
     Indication: MULTIPLE SCLEROSIS
  2. LAMICTAL [Suspect]
     Route: 065
     Dates: start: 20100514

REACTIONS (11)
  - OEDEMA PERIPHERAL [None]
  - HYPOAESTHESIA [None]
  - ARTHRALGIA [None]
  - PARAESTHESIA [None]
  - PRURITUS [None]
  - RASH GENERALISED [None]
  - TRIGEMINAL NEURALGIA [None]
  - GASTROOESOPHAGEAL REFLUX DISEASE [None]
  - ERYTHEMA [None]
  - HYPERSENSITIVITY [None]
  - FACIAL PAIN [None]
